FAERS Safety Report 4665461-1 (Version None)
Quarter: 2005Q2

REPORT INFORMATION
  Report Type: 
  Country: None (occurrence: None)
  Receive Date: 20050517
  Receipt Date: 20050504
  Transmission Date: 20051028
  Serious: Yes (Hospitalization)
  Sender: FDA-Public Use
  Company Number: USA050597593

PATIENT
  Age: 72 Year
  Sex: Female

DRUGS (7)
  1. FORTEO [Suspect]
     Indication: OSTEOPOROSIS
     Dates: start: 20041015
  2. CALCIUM GLUCONATE [Concomitant]
  3. LIPITOR [Concomitant]
  4. DETROL [Concomitant]
  5. PREVACID [Concomitant]
  6. TOPROL-XL [Concomitant]
  7. DILTIAZEM [Concomitant]

REACTIONS (4)
  - CONDITION AGGRAVATED [None]
  - INTERVERTEBRAL DISC DEGENERATION [None]
  - PHARMACEUTICAL PRODUCT COMPLAINT [None]
  - SPINAL CORD DISORDER [None]
